FAERS Safety Report 8284277-0 (Version None)
Quarter: 2012Q2

REPORT INFORMATION
  Report Type: 
  Country: None (occurrence: None)
  Receive Date: 20120413
  Receipt Date: 20110317
  Transmission Date: 20120825
  Serious: No
  Sender: FDA-Public Use
  Company Number: US-ASTRAZENECA-2011SE15215

PATIENT
  Sex: Female

DRUGS (5)
  1. VITAMIN D [Concomitant]
  2. VITAMIN E [Concomitant]
  3. CARAFATE [Concomitant]
  4. NEXIUM [Suspect]
     Indication: GASTROOESOPHAGEAL REFLUX DISEASE
     Route: 048
  5. LIBRAX [Concomitant]

REACTIONS (3)
  - INAPPROPRIATE SCHEDULE OF DRUG ADMINISTRATION [None]
  - FATIGUE [None]
  - ABDOMINAL PAIN [None]
